FAERS Safety Report 20853637 (Version 1)
Quarter: 2022Q2

REPORT INFORMATION
  Report Type: Spontaneous
  Country: PT (occurrence: PT)
  Receive Date: 20220520
  Receipt Date: 20220520
  Transmission Date: 20220721
  Serious: Yes (Other)
  Sender: FDA-Public Use
  Company Number: PT-VIIV HEALTHCARE LIMITED-PT2022EME067339

PATIENT
  Age: 63 Year
  Sex: Male

DRUGS (6)
  1. ABACAVIR\LAMIVUDINE [Suspect]
     Active Substance: ABACAVIR\LAMIVUDINE
     Indication: HIV infection
     Dosage: UNK , ABACAVIR SULFATE + LAMIVUDINE , DURATION : 6 YEARS
     Dates: start: 201402, end: 202003
  2. LAMIVUDINE [Suspect]
     Active Substance: LAMIVUDINE
     Indication: HIV infection
     Dosage: UNK , LAMIVUDINE HIV
     Dates: start: 202109
  3. NEVIRAPINE [Suspect]
     Active Substance: NEVIRAPINE
     Indication: HIV infection
     Dosage: UNK , DURATION : 6 YEARS
     Dates: start: 201402, end: 202003
  4. RILPIVIRINE [Suspect]
     Active Substance: RILPIVIRINE
     Indication: HIV infection
     Dosage: UNK , DURATION : 1 YEAR
     Dates: start: 202003, end: 202109
  5. DOLUTEGRAVIR [Suspect]
     Active Substance: DOLUTEGRAVIR
     Indication: HIV infection
     Dosage: UNK
     Dates: start: 202109
  6. DOLUTEGRAVIR [Suspect]
     Active Substance: DOLUTEGRAVIR
     Dosage: UNK
     Dates: start: 202003

REACTIONS (4)
  - Infarction [Unknown]
  - Blood triglycerides abnormal [Unknown]
  - Weight fluctuation [Unknown]
  - Blood cholesterol abnormal [Unknown]

NARRATIVE: CASE EVENT DATE: 20140201
